FAERS Safety Report 7639008-1 (Version None)
Quarter: 2011Q3

REPORT INFORMATION
  Report Type: 
  Country: None (occurrence: None)
  Receive Date: 20110725
  Receipt Date: 20110725
  Transmission Date: 20111222
  Serious: Yes (Hospitalization)
  Sender: FDA-Public Use
  Company Number: None

PATIENT
  Age: 66 Year
  Sex: Male
  Weight: 76.4 kg

DRUGS (2)
  1. VANCOMYCIN [Suspect]
     Indication: POSTOPERATIVE ABSCESS
     Dosage: 1250MG BID IV
     Route: 042
     Dates: start: 20110617, end: 20110703
  2. CEFEPIME [Suspect]
     Indication: POSTOPERATIVE ABSCESS
     Dosage: 2GM BID IV
     Route: 042
     Dates: start: 20110617, end: 20110703

REACTIONS (3)
  - NEPHRITIS [None]
  - BLOOD CREATININE INCREASED [None]
  - BLOOD UREA INCREASED [None]
